FAERS Safety Report 8418343 (Version 3)
Quarter: 2013Q1

REPORT INFORMATION
  Report Type: Spontaneous
  Country: CA (occurrence: CA)
  Receive Date: 20120221
  Receipt Date: 20130102
  Transmission Date: 20140127
  Serious: Yes (Other)
  Sender: FDA-Public Use
  Company Number: CA-UCBSA-032054

PATIENT
  Age: 54 Year
  Sex: Female

DRUGS (10)
  1. KEPPRA [Suspect]
     Indication: CONVULSION
  2. TYKERB [Interacting]
     Indication: BREAST CANCER METASTATIC
     Route: 048
     Dates: start: 20110416, end: 201104
  3. TYKERB [Interacting]
     Indication: BREAST CANCER
     Route: 048
     Dates: start: 20110416, end: 201104
  4. TYKERB [Interacting]
     Indication: BREAST CANCER METASTATIC
     Dosage: DAILY DOSE:1250 MG
     Route: 048
     Dates: start: 201108, end: 201111
  5. TYKERB [Interacting]
     Indication: BREAST CANCER
     Dosage: DAILY DOSE:1250 MG
     Route: 048
     Dates: start: 201108, end: 201111
  6. TYKERB [Interacting]
     Indication: BREAST CANCER METASTATIC
     Dosage: DAILY DOSE:1250 MG
     Route: 048
     Dates: end: 20120111
  7. TYKERB [Interacting]
     Indication: BREAST CANCER
     Dosage: DAILY DOSE:1250 MG
     Route: 048
     Dates: end: 20120111
  8. XELODA [Suspect]
     Indication: BREAST CANCER METASTATIC
     Dosage: UNKNOWN DOSE
  9. VALACICLOVIR HYDROCHLORIDE [Concomitant]
     Dosage: UNKNOWN DOSE
  10. FRAGMIN [Concomitant]
     Dosage: UNKNOWN DOSE

REACTIONS (8)
  - Malignant neoplasm progression [Not Recovered/Not Resolved]
  - Convulsion [Recovered/Resolved]
  - Drug interaction [Unknown]
  - Dyspepsia [Not Recovered/Not Resolved]
  - Hypophagia [Not Recovered/Not Resolved]
  - Weight decreased [Not Recovered/Not Resolved]
  - Bile duct obstruction [Not Recovered/Not Resolved]
  - Metastasis [Not Recovered/Not Resolved]
